FAERS Safety Report 4273706-5 (Version None)
Quarter: 2004Q1

REPORT INFORMATION
  Report Type: 
  Country: None (occurrence: None)
  Receive Date: 20040119
  Receipt Date: 20031218
  Transmission Date: 20041129
  Serious: Yes (Other)
  Sender: FDA-Public Use
  Company Number: US-ROCHE-354730

PATIENT
  Age: 53 Year
  Sex: Male
  Weight: 95.1 kg

DRUGS (11)
  1. CAPECITABINE [Suspect]
     Indication: COLORECTAL CANCER
     Dosage: ON DAYS 1-5, 8-12 OF A TWO WEEK CYCLE
     Route: 048
     Dates: start: 20031204
  2. BEVACIZUMAB [Suspect]
     Indication: COLORECTAL CANCER
     Route: 042
     Dates: start: 20031204
  3. OXALIPLATIN [Suspect]
     Indication: COLORECTAL CANCER
     Route: 042
     Dates: start: 20031204
  4. WELLBUTRIN [Concomitant]
  5. ZOCOR [Concomitant]
  6. ZOFRAN [Concomitant]
  7. COMPAZINE [Concomitant]
  8. TYLENOL [Concomitant]
  9. PROPOXYPHENE NAPSYLATE [Concomitant]
  10. MAALOX [Concomitant]
  11. PRILOSEC [Concomitant]

REACTIONS (2)
  - CATHETER SITE RELATED REACTION [None]
  - WOUND DEHISCENCE [None]
